FAERS Safety Report 16214536 (Version 1)
Quarter: 2019Q2

REPORT INFORMATION
  Report Type: Spontaneous
  Country: CN (occurrence: CN)
  Receive Date: 20190418
  Receipt Date: 20190418
  Transmission Date: 20190711
  Serious: Yes (Other)
  Sender: FDA-Public Use
  Company Number: CN-PFIZER INC-2019166342

PATIENT
  Age: 59 Year
  Sex: Male

DRUGS (2)
  1. CARBOHYDRATES NOS/ELECTROLYTES NOS [Concomitant]
     Dosage: UNK
     Route: 042
  2. PANTOLOC [Suspect]
     Active Substance: PANTOPRAZOLE SODIUM
     Dosage: 40 MG, UNK
     Route: 042
     Dates: start: 20190401, end: 20190401

REACTIONS (3)
  - Anaphylactic reaction [Recovering/Resolving]
  - Generalised erythema [Recovering/Resolving]
  - Dysphonia [Recovering/Resolving]

NARRATIVE: CASE EVENT DATE: 20190401
